FAERS Safety Report 10711431 (Version 3)
Quarter: 2015Q1

REPORT INFORMATION
  Report Type: Spontaneous
  Country: US (occurrence: US)
  Receive Date: 20150114
  Receipt Date: 20150224
  Transmission Date: 20150721
  Serious: Yes (Congenital Anomaly, Other)
  Sender: FDA-Public Use
  Company Number: US-APOTEX-2015AP005197

PATIENT
  Age: 0 Day
  Sex: Female

DRUGS (2)
  1. XANAX [Concomitant]
     Active Substance: ALPRAZOLAM
     Indication: DEPRESSION
     Dosage: UNK
     Route: 065
  2. PAXIL [Suspect]
     Active Substance: PAROXETINE HYDROCHLORIDE
     Indication: PRODUCT USED FOR UNKNOWN INDICATION
     Dosage: 20 MG, DAILY
     Route: 064
     Dates: start: 19981214, end: 199907

REACTIONS (11)
  - Pulmonary valve stenosis congenital [Not Recovered/Not Resolved]
  - Hydrocephalus [Unknown]
  - Pulmonary valve incompetence [Not Recovered/Not Resolved]
  - Bronchopulmonary dysplasia [Unknown]
  - Mitral valve hypoplasia [Unknown]
  - Heart valve stenosis [Unknown]
  - Food intolerance [Unknown]
  - Cardiac murmur [Unknown]
  - Coronary artery stenosis [Unknown]
  - Atrial septal defect [Unknown]
  - Foetal exposure during pregnancy [Unknown]

NARRATIVE: CASE EVENT DATE: 19990707
